FAERS Safety Report 17558351 (Version 1)
Quarter: 2020Q1

REPORT INFORMATION
  Report Type: Spontaneous
  Country: GR (occurrence: GR)
  Receive Date: 20200318
  Receipt Date: 20200318
  Transmission Date: 20200409
  Serious: Yes (Other)
  Sender: FDA-Public Use
  Company Number: GR-009507513-2003GRC004783

PATIENT
  Age: 66 Year
  Sex: Male

DRUGS (5)
  1. EZETIMIBE (+) ATORVASTATIN [Suspect]
     Active Substance: ATORVASTATIN\EZETIMIBE
     Indication: HYPERLIPIDAEMIA
     Dosage: ATORVASTATIN 40MG/EZETIMIBE 10MG
  2. SIMVASTATIN. [Suspect]
     Active Substance: SIMVASTATIN
     Indication: HYPERLIPIDAEMIA
     Dosage: 10 MILLIGRAM
  3. EZETIMIBE AND SIMVASTATIN [Suspect]
     Active Substance: EZETIMIBE\SIMVASTATIN
     Indication: HYPERLIPIDAEMIA
     Dosage: SIMVASTATIN 10MG/EZETIMIBE 10 MG
  4. ATORVASTATIN [Suspect]
     Active Substance: ATORVASTATIN
     Indication: HYPERLIPIDAEMIA
     Dosage: ATORVASTATIN 40 MG
  5. EZETIMIBE. [Suspect]
     Active Substance: EZETIMIBE
     Indication: HYPERLIPIDAEMIA
     Dosage: 10 MILLIGRAM

REACTIONS (1)
  - Immune-mediated myositis [Recovering/Resolving]
